FAERS Safety Report 9128440 (Version 1)
Quarter: 2013Q1

REPORT INFORMATION
  Report Type: Spontaneous
  Country: US (occurrence: US)
  Receive Date: 20130228
  Receipt Date: 20130228
  Transmission Date: 20140127
  Serious: No
  Sender: FDA-Public Use
  Company Number: US-GLAXOSMITHKLINE-A0986972A

PATIENT
  Sex: Female

DRUGS (2)
  1. SUMATRIPTAN SUCCINATE [Suspect]
     Indication: MIGRAINE
     Dosage: 4MG AS REQUIRED
     Route: 058
  2. NO CONCURRENT MEDICATION [Concomitant]

REACTIONS (1)
  - Burning sensation [Recovered/Resolved]
